FAERS Safety Report 19479700 (Version 1)
Quarter: 2021Q2

REPORT INFORMATION
  Report Type: Spontaneous
  Country: FR (occurrence: FR)
  Receive Date: 20210630
  Receipt Date: 20210630
  Transmission Date: 20210717
  Serious: Yes (Hospitalization, Other)
  Sender: FDA-Public Use
  Company Number: FR-MALLINCKRODT PHARMACEUTICALS-T202102918

PATIENT
  Age: 53 Year
  Sex: Female
  Weight: 68 kg

DRUGS (9)
  1. AGRASTAT [Suspect]
     Active Substance: TIROFIBAN HYDROCHLORIDE
     Indication: CARDIOVASCULAR EVENT PROPHYLAXIS
     Dosage: 592 MICROGRAM
     Route: 041
     Dates: start: 20210604, end: 20210604
  2. NEOSYNEPHRINE [Suspect]
     Active Substance: PHENYLEPHRINE HYDROCHLORIDE
     Indication: ANAESTHESIA
     Dosage: 650 MICROGRAM
     Route: 040
     Dates: start: 20210604, end: 20210604
  3. PROPOFOL. [Suspect]
     Active Substance: PROPOFOL
     Indication: ANAESTHESIA
     Dosage: 200 MILLIGRAM
     Route: 040
     Dates: start: 20210604, end: 20210604
  4. EPHEDRINE. [Suspect]
     Active Substance: EPHEDRINE
     Indication: ANAESTHESIA
     Dosage: 6 MILLIGRAM
     Route: 040
     Dates: start: 20210604, end: 20210604
  5. HEPARINE SODIQUE [Suspect]
     Active Substance: HEPARIN SODIUM
     Indication: THROMBOSIS PROPHYLAXIS
     Dosage: 7985 INTERNATIONAL UNIT
     Route: 041
     Dates: start: 20210604, end: 20210604
  6. OFIRMEV [Suspect]
     Active Substance: ACETAMINOPHEN
     Indication: PAIN
     Dosage: 1 GRAM
     Route: 041
     Dates: start: 20210604, end: 20210604
  7. SUFENTA [Suspect]
     Active Substance: SUFENTANIL CITRATE
     Indication: ANAESTHESIA
     Dosage: 25 MICROGRAM
     Route: 040
     Dates: start: 20210604, end: 20210604
  8. ATRACURIUM [Suspect]
     Active Substance: ATRACURIUM
     Indication: ANAESTHESIA
     Dosage: 30 MILLIGRAM
     Route: 040
     Dates: start: 20210604, end: 20210604
  9. VISIPAQUE [Suspect]
     Active Substance: IODIXANOL
     Indication: RADIOEMBOLISATION
     Dosage: 184 MILLILITER
     Route: 040
     Dates: start: 20210604, end: 20210604

REACTIONS (1)
  - Ischaemic stroke [Recovering/Resolving]

NARRATIVE: CASE EVENT DATE: 20210604
